FAERS Safety Report 18274225 (Version 1)
Quarter: 2020Q3

REPORT INFORMATION
  Report Type: Spontaneous
  Country: DK (occurrence: DK)
  Receive Date: 20200916
  Receipt Date: 20200916
  Transmission Date: 20201103
  Serious: Yes (Hospitalization)
  Sender: FDA-Public Use
  Company Number: DK-009507513-2009DNK005297

PATIENT
  Age: 39 Year
  Sex: Female

DRUGS (2)
  1. CITALOPRAM [Concomitant]
     Active Substance: CITALOPRAM HYDROBROMIDE
     Indication: ANXIETY
     Dosage: DOSE: UNKNOWN. STRENGTH: UNKNOWN
     Route: 048
  2. NUVARING [Suspect]
     Active Substance: ETHINYL ESTRADIOL\ETONOGESTREL
     Indication: CONTRACEPTION
     Dosage: 1 DOSAGE FORM, QD, STRENGTH: 120+15 MICROGRAM/24 H, INTRAUTERINE DELIVERY SYSTEM
     Route: 067
     Dates: end: 2012

REACTIONS (3)
  - Cerebral thrombosis [Unknown]
  - Sensory disturbance [Unknown]
  - Headache [Unknown]

NARRATIVE: CASE EVENT DATE: 20120509
